FAERS Safety Report 5089229-X (Version None)
Quarter: 2006Q3

REPORT INFORMATION
  Report Type: 
  Country: None (occurrence: None)
  Receive Date: 20060822
  Receipt Date: 20060811
  Transmission Date: 20061208
  Serious: Yes (Other)
  Sender: FDA-Public Use
  Company Number: 2983

PATIENT
  Age: 23 Year
  Sex: Male

DRUGS (1)
  1. AMNESTEEM [Suspect]
     Indication: ACNE
     Dosage: 40 MG TWICE DAY, ORALLY
     Route: 048
     Dates: start: 20060404, end: 20060807

REACTIONS (1)
  - GASTRIC DISORDER [None]
